FAERS Safety Report 9409569 (Version 1)
Quarter: 2013Q3

REPORT INFORMATION
  Report Type: Spontaneous
  Country: US (occurrence: US)
  Receive Date: 20130719
  Receipt Date: 20130719
  Transmission Date: 20140515
  Serious: Yes (Hospitalization, Other)
  Sender: FDA-Public Use
  Company Number: US-SANOFI-AVENTIS-2013SA071446

PATIENT
  Age: 59 Year
  Sex: Male

DRUGS (3)
  1. ARAVA [Suspect]
     Route: 065
  2. METHOTREXATE [Suspect]
     Route: 065
     Dates: end: 20130320
  3. ENBREL [Suspect]
     Indication: RHEUMATOID ARTHRITIS
     Dosage: FREQUNCY: QWK
     Route: 065
     Dates: start: 20080101, end: 2010

REACTIONS (10)
  - Disorientation [Not Recovered/Not Resolved]
  - Hot flush [Not Recovered/Not Resolved]
  - Bronchitis [Recovered/Resolved]
  - Pulmonary congestion [Recovered/Resolved]
  - Dyspnoea [Recovered/Resolved]
  - Cough [Recovered/Resolved]
  - Chest pain [Recovered/Resolved]
  - Anaemia [Recovered/Resolved]
  - Respiratory tract infection [Not Recovered/Not Resolved]
  - Dizziness [Not Recovered/Not Resolved]
